FAERS Safety Report 8076419-7 (Version None)
Quarter: 2011Q4

REPORT INFORMATION
  Report Type: 
  Country: None (occurrence: None)
  Receive Date: 20111221
  Receipt Date: 20110708
  Transmission Date: 20120403
  Serious: Yes (Hospitalization)
  Sender: FDA-Public Use
  Company Number: PHHY2011US59958

PATIENT
  Age: 8 Year
  Sex: Female
  Weight: 20 kg

DRUGS (3)
  1. FOLIC ACID [Concomitant]
  2. PENICILLIN [Concomitant]
  3. EXJADE [Suspect]
     Indication: SICKLE CELL ANAEMIA
     Dosage: 500 MG, QD, ORAL
     Route: 048

REACTIONS (4)
  - SICKLE CELL ANAEMIA WITH CRISIS [None]
  - ARTHRALGIA [None]
  - BACK PAIN [None]
  - PAIN [None]
